FAERS Safety Report 9417648 (Version 1)
Quarter: 2013Q3

REPORT INFORMATION
  Report Type: Spontaneous
  Country: US (occurrence: US)
  Receive Date: 20130724
  Receipt Date: 20130724
  Transmission Date: 20140515
  Serious: No
  Sender: FDA-Public Use
  Company Number: US-BRISTOL-MYERS SQUIBB COMPANY-18960252

PATIENT
  Sex: Female

DRUGS (2)
  1. ELIQUIS [Suspect]
     Indication: ATRIAL FIBRILLATION
  2. ASPIRIN [Concomitant]
     Indication: MIGRAINE WITH AURA
     Dosage: DUR:25YEARS

REACTIONS (4)
  - Migraine [Unknown]
  - Vomiting [Unknown]
  - Abdominal pain upper [Unknown]
  - Erythema [Unknown]
